FAERS Safety Report 4632115-7 (Version None)
Quarter: 2005Q2

REPORT INFORMATION
  Report Type: 
  Country: None (occurrence: None)
  Receive Date: 20050401
  Receipt Date: 20040715
  Transmission Date: 20051028
  Serious: Yes (Life-Threatening, Hospitalization)
  Sender: FDA-Public Use
  Company Number: 04P-163-0267256-00

PATIENT
  Age: 37 Year
  Sex: Female

DRUGS (2)
  1. DEPAKOTE [Suspect]
     Indication: BIPOLAR DISORDER
     Dosage: PER ORAL
     Route: 048
     Dates: start: 20050330, end: 20040518
  2. FLURAZEPAM HCL [Concomitant]

REACTIONS (1)
  - HEPATIC FAILURE [None]
